FAERS Safety Report 6252151-7 (Version None)
Quarter: 2009Q2

REPORT INFORMATION
  Report Type: 
  Country: None (occurrence: None)
  Receive Date: 20090630
  Receipt Date: 20060619
  Transmission Date: 20091009
  Serious: Yes (Hospitalization)
  Sender: FDA-Public Use
  Company Number: US-ROCHE-639242

PATIENT
  Sex: Male

DRUGS (17)
  1. ENFUVIRTIDE [Suspect]
     Route: 065
     Dates: start: 20031031, end: 20080215
  2. KALETRA [Concomitant]
     Dates: start: 20031031, end: 20080215
  3. VIRAMUNE [Concomitant]
     Dates: start: 20031031, end: 20061120
  4. ZERIT [Concomitant]
     Dates: start: 20031031, end: 20080215
  5. DIFLUCAN [Concomitant]
     Dosage: FREQUENCY: QD
     Dates: start: 20041008, end: 20080215
  6. ZITHROMAX [Concomitant]
     Dates: start: 20050228, end: 20080215
  7. CLINDAMYCIN [Concomitant]
     Dates: start: 20060620, end: 20060623
  8. CLINDAMYCIN [Concomitant]
     Dates: start: 20070801, end: 20070805
  9. KEFLEX [Concomitant]
     Dates: start: 20060725, end: 20060730
  10. LEVAQUIN [Concomitant]
     Dosage: FREQUENCY: QD
     Dates: start: 20061012, end: 20061022
  11. LEVAQUIN [Concomitant]
     Dosage: FREQUENCY: QD
     Dates: start: 20070703, end: 20070710
  12. LEVAQUIN [Concomitant]
     Dosage: FREQUENCY: QD
     Dates: start: 20070801, end: 20070805
  13. AUGMENTIN [Concomitant]
     Dates: start: 20071004, end: 20071018
  14. AMOXICILLIN [Concomitant]
     Dates: start: 20071101, end: 20071128
  15. ACYCLOVIR [Concomitant]
     Dosage: FREQUENCY: QD
     Dates: end: 20080215
  16. BACTRIM DS [Concomitant]
     Dosage: FREQUENCY: QD, DOSE: DS
     Dates: end: 20080215
  17. BACTRIM DS [Concomitant]
     Dosage: DRUG: SEPTRA, FREQUENCY: QD

REACTIONS (6)
  - FALL [None]
  - FEMORAL NECK FRACTURE [None]
  - IMPACTED FRACTURE [None]
  - NAUSEA [None]
  - RADICULOPATHY [None]
  - VOMITING [None]
